FAERS Safety Report 7991446-3 (Version None)
Quarter: 2011Q4

REPORT INFORMATION
  Report Type: 
  Country: None (occurrence: None)
  Receive Date: 20111219
  Receipt Date: 20111212
  Transmission Date: 20120403
  Serious: Yes (Other)
  Sender: FDA-Public Use
  Company Number: US-BAYER-2011-028189

PATIENT
  Age: 28 Year
  Sex: Female
  Weight: 83.9 kg

DRUGS (5)
  1. DROSPIRENONE AND ETHINYL ESTRADIOL [Suspect]
     Dosage: UNK
     Dates: start: 20090101
  2. YASMIN [Suspect]
     Dosage: UNK
     Dates: start: 20060101, end: 20100601
  3. YASMIN [Suspect]
     Dosage: UNK
     Dates: start: 20080101
  4. YASMIN [Suspect]
     Dosage: UNK
     Dates: start: 20090101
  5. DROSPIRENONE AND ETHINYL ESTRADIOL [Suspect]
     Dosage: UNK
     Dates: start: 20080101

REACTIONS (5)
  - EMOTIONAL DISTRESS [None]
  - ANHEDONIA [None]
  - PAIN [None]
  - GALLBLADDER DISORDER [None]
  - CEREBROVASCULAR ACCIDENT [None]
